FAERS Safety Report 5508703-2 (Version None)
Quarter: 2007Q4

REPORT INFORMATION
  Report Type: 
  Country: None (occurrence: None)
  Receive Date: 20071107
  Receipt Date: 20071026
  Transmission Date: 20080405
  Serious: Yes (Other)
  Sender: FDA-Public Use
  Company Number: US-AMGEN-US249968

PATIENT
  Age: 78 Year
  Sex: Male

DRUGS (14)
  1. SENSIPAR [Suspect]
     Indication: HYPERPARATHYROIDISM SECONDARY
     Route: 048
     Dates: start: 20070601
  2. EPOGEN [Concomitant]
     Indication: RENAL FAILURE CHRONIC
     Route: 042
     Dates: start: 20070501
  3. ZEMPLAR [Concomitant]
     Route: 065
  4. MIDODRINE HYDROCHLORIDE [Concomitant]
     Route: 065
  5. CLOBETASOL PROPIONATE [Concomitant]
     Route: 065
  6. HYDROCODONE [Concomitant]
     Route: 065
  7. NITROGLYCERIN [Concomitant]
     Route: 065
  8. ASPIRIN [Concomitant]
     Route: 065
  9. FENTANYL [Concomitant]
     Route: 065
  10. LORAZEPAM [Concomitant]
     Route: 065
  11. LIPITOR [Concomitant]
     Route: 065
  12. PLAVIX [Concomitant]
     Route: 065
  13. RENAGEL [Concomitant]
     Route: 065
  14. RENALTABS [Concomitant]
     Route: 065

REACTIONS (3)
  - CALCIPHYLAXIS [None]
  - DRUG INEFFECTIVE [None]
  - SKIN ULCER [None]
